FAERS Safety Report 7480932-0 (Version None)
Quarter: 2011Q2

REPORT INFORMATION
  Report Type: 
  Country: None (occurrence: None)
  Receive Date: 20110516
  Receipt Date: 20110502
  Transmission Date: 20111010
  Serious: Yes (Hospitalization)
  Sender: FDA-Public Use
  Company Number: US-ELI_LILLY_AND_COMPANY-US201007004806

PATIENT
  Sex: Female
  Weight: 47.075 kg

DRUGS (25)
  1. OXYGEN [Concomitant]
     Dosage: 2 L, QD
  2. CALCIUM [Concomitant]
     Dosage: 500 MG, BID
  3. ALBUTEROL SULFATE [Concomitant]
     Dosage: UNK, OTHER
  4. DILTIAZEM [Concomitant]
     Indication: BLOOD PRESSURE ABNORMAL
  5. ZITHROMAX [Concomitant]
     Dosage: 250 MG, QD
  6. OMEPRAZOLE [Concomitant]
     Dosage: 40 MG, UNK
     Route: 048
  7. VENTOLIN HFA [Concomitant]
     Dosage: 90 UG, OTHER
  8. FORTEO [Suspect]
     Dosage: 20 UG, QD
  9. PRILOSEC [Concomitant]
     Dosage: UNK, BID
  10. CALCIUM [Concomitant]
     Dosage: 600 MG, EACH MORNING
     Route: 048
  11. DILTIA XT [Concomitant]
     Dosage: 240 MG, UNK
     Route: 048
  12. FORTEO [Suspect]
     Indication: OSTEOPOROSIS
     Dosage: 20 UG, QD
     Dates: start: 20100706
  13. SIMVASTATIN [Concomitant]
  14. MELATONIN [Concomitant]
     Dosage: 5 MG, UNK
     Route: 048
  15. TYLENOL (CAPLET) [Concomitant]
     Dosage: 1300 MG, QD
  16. PREDNISONE [Concomitant]
     Dosage: 5 MG, QD
  17. TYLENOL                                 /SCH/ [Concomitant]
     Dosage: 1 DF, BID
  18. VITAMIN E [Concomitant]
     Dosage: 1 UNK, UNK
     Route: 048
  19. GLUCOSAMINE CHONDROITIN [Concomitant]
     Dosage: 2 DF, UNK
     Route: 048
  20. ZOCOR [Concomitant]
     Dosage: 20 UNK, UNK
     Route: 048
  21. ADVAIR DISKUS 100/50 [Concomitant]
     Dosage: 500 DF, BID
     Route: 055
  22. ALBUTEROL SULFATE AND IPRATROPIUM BROMIDE [Concomitant]
     Dosage: UNK UNK, QID
  23. MULTI-VITAMIN [Concomitant]
     Dosage: 1 DF, UNK
     Route: 048
  24. VIACTIV                                 /USA/ [Concomitant]
     Dosage: 1 DF, QD
     Route: 048
  25. ADVAIR DISKUS 100/50 [Concomitant]
     Dosage: 1 DF, BID

REACTIONS (8)
  - INJECTION SITE HAEMATOMA [None]
  - SPINAL COLUMN STENOSIS [None]
  - SPINAL OSTEOARTHRITIS [None]
  - ARTHRALGIA [None]
  - PAIN IN EXTREMITY [None]
  - PYREXIA [None]
  - RADICULOPATHY [None]
  - COUGH [None]
